FAERS Safety Report 10219676 (Version 1)
Quarter: 2014Q2

REPORT INFORMATION
  Report Type: Spontaneous
  Country: CN (occurrence: CN)
  Receive Date: 20140605
  Receipt Date: 20140605
  Transmission Date: 20141212
  Serious: Yes (Other)
  Sender: FDA-Public Use
  Company Number: CN-ACTAVIS-2014-12353

PATIENT
  Age: 16 Year
  Sex: 0

DRUGS (3)
  1. TACROLIMUS (UNKNOWN) [Suspect]
     Indication: IMMUNOSUPPRESSANT DRUG THERAPY
     Dosage: 6.5 MG, BID
     Route: 065
  2. BERBERINE HYDROCHLORIDE(UNKNOWN) [Interacting]
     Indication: DIARRHOEA
     Dosage: 0.2 G, TID
     Route: 065
  3. PREDNISONE [Concomitant]
     Indication: IMMUNOSUPPRESSANT DRUG THERAPY
     Dosage: 60 MG/M2, DAILY
     Route: 065

REACTIONS (5)
  - Immunosuppressant drug level increased [Recovering/Resolving]
  - Blood creatinine increased [Recovering/Resolving]
  - Drug interaction [Recovering/Resolving]
  - Nephropathy toxic [None]
  - Diarrhoea [None]
